FAERS Safety Report 8861876 (Version 1)
Quarter: 2012Q4

REPORT INFORMATION
  Report Type: Spontaneous
  Country: US (occurrence: None)
  Receive Date: 20121026
  Receipt Date: 20121026
  Transmission Date: 20130627
  Serious: Yes (Other)
  Sender: FDA-Public Use
  Company Number: None

PATIENT
  Age: 29 Year
  Sex: Male
  Weight: 70.31 kg

DRUGS (1)
  1. BACITRACIN [Suspect]
     Indication: SURGICAL PROCEDURE
     Dates: start: 20120808, end: 20120808

REACTIONS (3)
  - Inflammation [None]
  - Pain [None]
  - Post procedural complication [None]
